FAERS Safety Report 21944396 (Version 3)
Quarter: 2023Q1

REPORT INFORMATION
  Report Type: Spontaneous
  Country: DE (occurrence: DE)
  Receive Date: 20230202
  Receipt Date: 20230307
  Transmission Date: 20230418
  Serious: Yes (Hospitalization, Other)
  Sender: FDA-Public Use
  Company Number: DE-SAMSUNG BIOEPIS-SB-2023-01662

PATIENT
  Age: 77 Year
  Sex: Female
  Weight: 60 kg

DRUGS (6)
  1. DOCETAXEL [Suspect]
     Active Substance: DOCETAXEL
     Indication: Breast cancer
     Dosage: 100 MILLIGRAM (3 WEEK) (EVERY 21 DAYS )
     Route: 042
     Dates: start: 20221102, end: 20230104
  2. DOCETAXEL [Suspect]
     Active Substance: DOCETAXEL
     Dosage: 100 MILLIGRAM (3 WEEK)
     Route: 042
     Dates: start: 20221102, end: 20230112
  3. CARBOPLATIN [Suspect]
     Active Substance: CARBOPLATIN
     Indication: Breast cancer female
     Dosage: 300 MILLIGRAM (3 WEEK)
     Route: 042
     Dates: start: 20221102, end: 20230112
  4. CARBOPLATIN [Suspect]
     Active Substance: CARBOPLATIN
     Dosage: 300 MILLIGRAM (3 WEEK)
     Route: 042
     Dates: start: 20221102, end: 20230104
  5. ONTRUZANT [Suspect]
     Active Substance: TRASTUZUMAB-DTTB
     Indication: Breast cancer female
     Dosage: 360 MILLIGRAM (3 WEEK) (EVERY 21 DAYS )
     Route: 042
     Dates: start: 20221102, end: 20230112
  6. PERTUZUMAB [Suspect]
     Active Substance: PERTUZUMAB
     Indication: Breast cancer female
     Dosage: 420 MILLIGRAM (3 WEEK) (EVERY 21 DAYS )
     Route: 042
     Dates: start: 20221102, end: 20230112

REACTIONS (4)
  - Gastric haemorrhage [Recovered/Resolved]
  - Shock haemorrhagic [Recovered/Resolved]
  - Duodenal ulcer [Recovered/Resolved]
  - Capillary leak syndrome [Unknown]

NARRATIVE: CASE EVENT DATE: 20230112
